FAERS Safety Report 4288136-X (Version None)
Quarter: 2004Q1

REPORT INFORMATION
  Report Type: 
  Country: None (occurrence: None)
  Receive Date: 20040205
  Receipt Date: 20040120
  Transmission Date: 20041129
  Serious: Yes (Life-Threatening)
  Sender: FDA-Public Use
  Company Number: BRO-006966

PATIENT
  Age: 44 Year
  Sex: Male

DRUGS (10)
  1. IOPAMIDOL-300 [Suspect]
     Indication: COMPUTERISED TOMOGRAM
     Dosage: 80 ML IV
     Route: 042
     Dates: start: 20031204, end: 20031204
  2. IOPAMIDOL-300 [Suspect]
     Indication: OESOPHAGEAL CARCINOMA
     Dosage: 80 ML IV
     Route: 042
     Dates: start: 20031204, end: 20031204
  3. NOVAMIN (PROCHLORPERAZINE) [Concomitant]
  4. VOLTAREN-XR [Concomitant]
  5. MS CONTIN [Concomitant]
  6. ALLOID  (SODIUM ALGINATE) [Concomitant]
  7. PONTAL [Concomitant]
  8. CATLEP [Concomitant]
  9. HALCION [Concomitant]
  10. PURSENNID [Concomitant]

REACTIONS (3)
  - INFECTION [None]
  - STEVENS-JOHNSON SYNDROME [None]
  - TOXIC SKIN ERUPTION [None]
